FAERS Safety Report 6803563-1 (Version None)
Quarter: 2010Q2

REPORT INFORMATION
  Report Type: 
  Country: None (occurrence: None)
  Receive Date: 20100628
  Receipt Date: 20100621
  Transmission Date: 20101027
  Serious: Yes (Other)
  Sender: FDA-Public Use
  Company Number: US-MERCK-1006USA03481

PATIENT
  Sex: Male

DRUGS (1)
  1. TIMOPTIC [Suspect]
     Route: 047

REACTIONS (2)
  - BLINDNESS [None]
  - HYPERSENSITIVITY [None]
